FAERS Safety Report 5673490-4 (Version None)
Quarter: 2008Q1

REPORT INFORMATION
  Report Type: 
  Country: None (occurrence: None)
  Receive Date: 20080319
  Receipt Date: 20080310
  Transmission Date: 20080703
  Serious: Yes (Hospitalization)
  Sender: FDA-Public Use
  Company Number: BR-ABBOTT-08P-020-0440591-00

PATIENT
  Age: 11 Year
  Sex: Female
  Weight: 45 kg

DRUGS (6)
  1. DEPAKOTE ER [Suspect]
     Indication: EPILEPSY
     Route: 048
  2. DEPAKOTE ER [Suspect]
     Indication: PETIT MAL EPILEPSY
     Route: 048
     Dates: start: 20070101
  3. DEPAKOTE [Suspect]
     Indication: EPILEPSY
     Route: 048
  4. DEPAKOTE [Suspect]
     Indication: PETIT MAL EPILEPSY
  5. PHENYTOIN [Concomitant]
     Indication: EPILEPSY
     Route: 042
     Dates: start: 20080201
  6. PHENYTOIN [Concomitant]
     Indication: PETIT MAL EPILEPSY

REACTIONS (3)
  - PANCREATITIS HAEMORRHAGIC [None]
  - PANCREATITIS NECROTISING [None]
  - PETIT MAL EPILEPSY [None]
